FAERS Safety Report 25549218 (Version 1)
Quarter: 2025Q3

REPORT INFORMATION
  Report Type: Spontaneous
  Country: US (occurrence: US)
  Receive Date: 20250714
  Receipt Date: 20250714
  Transmission Date: 20251020
  Serious: No
  Sender: ASTELLAS
  Company Number: US-ASTELLAS-2025-AER-006031

PATIENT
  Age: 74 Year
  Sex: Male

DRUGS (1)
  1. MYRBETRIQ [Suspect]
     Active Substance: MIRABEGRON
     Indication: Product used for unknown indication
     Dosage: 25MG DAILY
     Route: 065
     Dates: start: 202501

REACTIONS (1)
  - Abdominal pain upper [Unknown]
